FAERS Safety Report 18289792 (Version 1)
Quarter: 2020Q3

REPORT INFORMATION
  Report Type: Spontaneous
  Country: US (occurrence: US)
  Receive Date: 20200921
  Receipt Date: 20200921
  Transmission Date: 20201103
  Serious: No
  Sender: FDA-Public Use
  Company Number: US-BRAINTREE LABORATORIES-200152

PATIENT
  Age: 64 Year
  Sex: Female

DRUGS (1)
  1. SUPREP BOWEL PREP [Suspect]
     Active Substance: MAGNESIUM SULFATE\POTASSIUM SULFATE\SODIUM SULFATE
     Indication: COLONOSCOPY
     Route: 065

REACTIONS (7)
  - Chest pain [None]
  - Anxiety [None]
  - Discomfort [None]
  - Back pain [None]
  - Dyspnoea [None]
  - Vomiting projectile [None]
  - Abdominal pain upper [None]

NARRATIVE: CASE EVENT DATE: 20200407
